FAERS Safety Report 14245331 (Version 1)
Quarter: 2017Q4

REPORT INFORMATION
  Report Type: Spontaneous
  Country: US (occurrence: US)
  Receive Date: 20171202
  Receipt Date: 20171202
  Transmission Date: 20180321
  Serious: No
  Sender: FDA-Public Use
  Company Number: US-ENDO PHARMACEUTICALS INC-2017-004936

PATIENT
  Age: 41 Year
  Sex: Male
  Weight: 91.16 kg

DRUGS (2)
  1. XIAFLEX [Suspect]
     Active Substance: COLLAGENASE CLOSTRIDIUM HISTOLYTICUM
     Indication: PEYRONIE^S DISEASE
     Dosage: UNK, FIRST CYCLE, INJECTION TWO
     Route: 026
     Dates: start: 20170907
  2. XIAFLEX [Suspect]
     Active Substance: COLLAGENASE CLOSTRIDIUM HISTOLYTICUM
     Dosage: UNK, FIRST CYCLE, INJECTION ONE
     Route: 026
     Dates: start: 20170905

REACTIONS (4)
  - Oedema genital [Not Recovered/Not Resolved]
  - Penile swelling [Not Recovered/Not Resolved]
  - Genital contusion [Unknown]
  - Penile contusion [Unknown]

NARRATIVE: CASE EVENT DATE: 20170907
